FAERS Safety Report 23294720 (Version 6)
Quarter: 2024Q1

REPORT INFORMATION
  Report Type: Spontaneous
  Country: US (occurrence: US)
  Receive Date: 20231213
  Receipt Date: 20240328
  Transmission Date: 20240409
  Serious: No
  Sender: FDA-Public Use
  Company Number: US-Calliditas-2023CAL01591

PATIENT
  Age: 37 Year
  Sex: Female
  Weight: 72.12 kg

DRUGS (4)
  1. TARPEYO [Suspect]
     Active Substance: BUDESONIDE
     Indication: IgA nephropathy
     Dosage: 16 MG (4 MG CAPSULES) ONCE DAILY
     Route: 048
     Dates: start: 20230803
  2. CANDESARTAN [Concomitant]
     Active Substance: CANDESARTAN
  3. FISH OIL [Concomitant]
     Active Substance: FISH OIL
  4. VITAMIN B12 [Concomitant]
     Active Substance: CYANOCOBALAMIN

REACTIONS (9)
  - Muscle spasms [Recovered/Resolved]
  - Food craving [Unknown]
  - Blood glucose fluctuation [Unknown]
  - Blood pressure increased [Recovered/Resolved]
  - Cushingoid [Not Recovered/Not Resolved]
  - Lipohypertrophy [Not Recovered/Not Resolved]
  - Hot flush [Unknown]
  - Restlessness [Unknown]
  - Terminal insomnia [Unknown]

NARRATIVE: CASE EVENT DATE: 20231101
